FAERS Safety Report 8498028-8 (Version None)
Quarter: 2012Q3

REPORT INFORMATION
  Report Type: 
  Country: None (occurrence: None)
  Receive Date: 20120709
  Receipt Date: 20120618
  Transmission Date: 20120928
  Serious: No
  Sender: FDA-Public Use
  Company Number: US-AMGEN-USASP2012037663

PATIENT
  Age: 37 Year
  Sex: Male

DRUGS (1)
  1. ENBREL [Suspect]
     Indication: PSORIATIC ARTHROPATHY
     Dosage: 50 MG, QWK
     Dates: start: 20110509

REACTIONS (6)
  - PSORIATIC ARTHROPATHY [None]
  - INTERVERTEBRAL DISC PROTRUSION [None]
  - MYALGIA [None]
  - NEURALGIA [None]
  - INJECTION SITE PAIN [None]
  - INTERVERTEBRAL DISC DEGENERATION [None]
